FAERS Safety Report 8186351-6 (Version None)
Quarter: 2012Q1

REPORT INFORMATION
  Report Type: 
  Country: None (occurrence: None)
  Receive Date: 20120306
  Receipt Date: 20120227
  Transmission Date: 20120608
  Serious: Yes (Hospitalization, Other)
  Sender: FDA-Public Use
  Company Number: US-BAYER-2011-037672

PATIENT
  Age: 21 Year
  Sex: Female
  Weight: 74.83 kg

DRUGS (4)
  1. YASMIN [Suspect]
     Dosage: UNK
     Route: 048
     Dates: start: 20021005, end: 20100215
  2. ZOLOFT [Concomitant]
     Indication: DEPRESSION
  3. DROSPIRENONE AND ETHINYL ESTRADIOL [Suspect]
     Dosage: UNK
     Dates: start: 20021005, end: 20100215
  4. ZOLOFT [Concomitant]
     Indication: ANXIETY
     Dosage: DAILY DOSE 100 MG
     Route: 048
     Dates: start: 20030901

REACTIONS (9)
  - GALLBLADDER DISORDER [None]
  - ABDOMINAL PAIN [None]
  - BILIARY DYSKINESIA [None]
  - PAIN [None]
  - ANHEDONIA [None]
  - ABDOMINAL PAIN UPPER [None]
  - CHOLECYSTITIS CHRONIC [None]
  - INJURY [None]
  - ANXIETY [None]
